FAERS Safety Report 25484458 (Version 1)
Quarter: 2025Q2

REPORT INFORMATION
  Report Type: Spontaneous
  Country: US (occurrence: None)
  Receive Date: 20250626
  Receipt Date: 20250626
  Transmission Date: 20250716
  Serious: Yes (Death)
  Sender: FDA-CTU
  Company Number: None

PATIENT
  Age: 58 Year
  Sex: Female
  Weight: 79.8 kg

DRUGS (10)
  1. REPATHA [Suspect]
     Active Substance: EVOLOCUMAB
     Dates: start: 20240214
  2. DEXMETHYLPHENIDATE [Suspect]
     Active Substance: DEXMETHYLPHENIDATE
  3. ZEPBOUND [Suspect]
     Active Substance: TIRZEPATIDE
  4. ASPIRIN [Suspect]
     Active Substance: ASPIRIN
  5. TOUJEO MAX [Suspect]
     Active Substance: INSULIN GLARGINE
  6. VENTOLIN HFA [Suspect]
     Active Substance: ALBUTEROL SULFATE
  7. SYMBICORT [Suspect]
     Active Substance: BUDESONIDE\FORMOTEROL FUMARATE DIHYDRATE
  8. VENLAFAXINE [Suspect]
     Active Substance: VENLAFAXINE HYDROCHLORIDE
  9. CLONAZEPAM [Suspect]
     Active Substance: CLONAZEPAM
  10. Novolog 1 00u/ml [Concomitant]

REACTIONS (1)
  - Chest pain [None]

NARRATIVE: CASE EVENT DATE: 20250323
